FAERS Safety Report 5009681-5 (Version None)
Quarter: 2006Q2

REPORT INFORMATION
  Report Type: 
  Country: None (occurrence: None)
  Receive Date: 20060524
  Receipt Date: 20060516
  Transmission Date: 20061013
  Serious: Yes (Other)
  Sender: FDA-Public Use
  Company Number: PHEH2006US06410

PATIENT
  Age: 39 Year
  Sex: Female

DRUGS (7)
  1. HYDROXYZINE [Concomitant]
     Indication: SLEEP DISORDER
     Dates: start: 20060502
  2. TRILEPTAL [Suspect]
     Indication: BIPOLAR DISORDER
     Dates: start: 20050101, end: 20050101
  3. TRILEPTAL [Suspect]
     Dosage: 600 MG, UNK
     Route: 048
     Dates: start: 20060502
  4. TRILEPTAL [Suspect]
     Dosage: 300 MG, UNK
     Dates: start: 20060512
  5. LIPITOR [Concomitant]
  6. NORVASC [Concomitant]
  7. MAXZIDE [Concomitant]

REACTIONS (8)
  - CONDITION AGGRAVATED [None]
  - CRYING [None]
  - DEPRESSION [None]
  - INSOMNIA [None]
  - MOOD ALTERED [None]
  - PARANOIA [None]
  - SUICIDAL IDEATION [None]
  - THINKING ABNORMAL [None]
